FAERS Safety Report 8515443-4 (Version None)
Quarter: 2012Q3

REPORT INFORMATION
  Report Type: 
  Country: None (occurrence: None)
  Receive Date: 20120717
  Receipt Date: 20120711
  Transmission Date: 20120928
  Serious: Yes (Death, Hospitalization)
  Sender: FDA-Public Use
  Company Number: US-ACTELION-A-US2012-68355

PATIENT

DRUGS (4)
  1. PLAVIX [Concomitant]
  2. VENTAVIS [Suspect]
     Indication: PULMONARY ARTERIAL HYPERTENSION
     Dosage: 5 ?G, Q4HRS
     Route: 055
     Dates: start: 20120502, end: 20120703
  3. CALCIUM CHANNEL BLOCKERS [Concomitant]
  4. ADCIRCA [Concomitant]

REACTIONS (4)
  - CARDIO-RESPIRATORY ARREST [None]
  - FALL [None]
  - UNRESPONSIVE TO STIMULI [None]
  - UPPER LIMB FRACTURE [None]
